FAERS Safety Report 4949698-X (Version None)
Quarter: 2006Q1

REPORT INFORMATION
  Report Type: 
  Country: None (occurrence: None)
  Receive Date: 20060316
  Receipt Date: 20060228
  Transmission Date: 20060701
  Serious: No
  Sender: FDA-Public Use
  Company Number: ACO_0212_2006

PATIENT
  Age: 32 Year
  Sex: Female
  Weight: 63.5036 kg

DRUGS (2)
  1. ZANAFLEX [Suspect]
     Indication: MUSCLE SPASMS
     Dosage: 4 MG QHS PO
     Route: 048
     Dates: start: 20050701, end: 20060210
  2. CIPROFLOXACIN [Concomitant]

REACTIONS (2)
  - HALLUCINATION [None]
  - SLEEP DISORDER [None]
